FAERS Safety Report 12333649 (Version 1)
Quarter: 2016Q2

REPORT INFORMATION
  Report Type: Spontaneous
  Country: US (occurrence: US)
  Receive Date: 20160504
  Receipt Date: 20160504
  Transmission Date: 20160815
  Serious: No
  Sender: FDA-Public Use
  Company Number: US-ROCHE-1655280

PATIENT
  Sex: Female

DRUGS (5)
  1. SYNTHROID [Concomitant]
     Active Substance: LEVOTHYROXINE SODIUM
  2. LOPRESSOR [Concomitant]
     Active Substance: METOPROLOL TARTRATE
  3. TRICOR [Concomitant]
     Active Substance: FENOFIBRATE
  4. ESBRIET [Suspect]
     Active Substance: PIRFENIDONE
     Indication: IDIOPATHIC PULMONARY FIBROSIS
     Route: 048
     Dates: start: 20150821
  5. BABY ASPIRIN [Concomitant]
     Active Substance: ASPIRIN

REACTIONS (1)
  - Hepatic enzyme increased [Unknown]
